FAERS Safety Report 6470566-9 (Version None)
Quarter: 2009Q4

REPORT INFORMATION
  Report Type: 
  Country: None (occurrence: None)
  Receive Date: 20091203
  Receipt Date: 20091113
  Transmission Date: 20100525
  Serious: Yes (Other)
  Sender: FDA-Public Use
  Company Number: DE-ROCHE-650357

PATIENT
  Sex: Female

DRUGS (5)
  1. MYCOPHENOLATE MOFETIL [Suspect]
     Indication: RENAL TRANSPLANT
     Dosage: LAST DOSE PRIOR TO SAE ON 25 JULY 2009. UNITS REPORTED: MG. ROUTE: P.O.
     Route: 048
  2. TACROLIMUS [Suspect]
     Indication: RENAL TRANSPLANT
     Dosage: LAST DOSE PRIOR TO SAE ON 25 JULY 2009. UNITS REPORTED: MG. ROUTE: P.O.
     Route: 048
  3. ANTI-THYMOCYTE GLOBULIN NOS [Suspect]
     Indication: RENAL TRANSPLANT
     Dosage: FREQUENCY:1. UNITS: MG.
     Route: 042
  4. PREDNISOLONE [Suspect]
     Indication: RENAL TRANSPLANT
     Dosage: LAST DOSE PRIOR TO SAE ON 25 JULY 2009. FREQUENCY REPORTED: 1. UNITS: MG
     Route: 042
  5. PREDNISOLONE [Suspect]
     Route: 042

REACTIONS (2)
  - IMPAIRED HEALING [None]
  - TRANSPLANT REJECTION [None]
